FAERS Safety Report 15990393 (Version 1)
Quarter: 2019Q1

REPORT INFORMATION
  Report Type: Report from Study
  Country: None (occurrence: US)
  Receive Date: 20190221
  Receipt Date: 20190221
  Transmission Date: 20190418
  Serious: Yes (Hospitalization, Other)
  Sender: FDA-Public Use
  Company Number: US-ABBVIE-19S-163-2669646-00

PATIENT
  Age: 67 Year
  Sex: Female

DRUGS (1)
  1. CREON [Suspect]
     Active Substance: PANCRELIPASE AMYLASE\PANCRELIPASE LIPASE\PANCRELIPASE PROTEASE
     Indication: PRODUCT USED FOR UNKNOWN INDICATION
     Route: 048

REACTIONS (24)
  - Diarrhoea [Unknown]
  - Atrophic vulvovaginitis [Unknown]
  - Tobacco user [Unknown]
  - Diarrhoea [Unknown]
  - Vitamin D deficiency [Unknown]
  - Gastrooesophageal reflux disease [Unknown]
  - Polyp [Unknown]
  - Gastritis [Unknown]
  - Incontinence [Unknown]
  - Haemorrhoids [Unknown]
  - Hyperlipidaemia [Unknown]
  - Deep vein thrombosis [Unknown]
  - Pancreatic failure [Unknown]
  - Obstructive pancreatitis [Unknown]
  - Chest pain [Unknown]
  - Hyperglycaemia [Unknown]
  - Lumbar radiculopathy [Unknown]
  - Gastrooesophageal reflux disease [Unknown]
  - Spinal column stenosis [Unknown]
  - Osteopenia [Unknown]
  - Hiatus hernia [Unknown]
  - Lumbar spinal stenosis [Unknown]
  - Pancreatitis chronic [Unknown]
  - Large intestine polyp [Unknown]

NARRATIVE: CASE EVENT DATE: 20100625
